FAERS Safety Report 12681663 (Version 2)
Quarter: 2016Q3

REPORT INFORMATION
  Report Type: Spontaneous
  Country: US (occurrence: US)
  Receive Date: 20160824
  Receipt Date: 20160926
  Transmission Date: 20161109
  Serious: Yes (Death, Other)
  Sender: FDA-Public Use
  Company Number: US-BAUSCH-BL-2016-020099

PATIENT
  Age: 79 Year
  Sex: Male

DRUGS (9)
  1. SPIRONOLACTONE. [Concomitant]
     Active Substance: SPIRONOLACTONE
     Dates: start: 20160721
  2. XIFAXAN [Suspect]
     Active Substance: RIFAXIMIN
     Indication: LIVER DISORDER
     Route: 065
     Dates: start: 201607
  3. LEVOTHYROXINE. [Concomitant]
     Active Substance: LEVOTHYROXINE
     Indication: THYROID DISORDER
  4. ALLOPURINOL. [Concomitant]
     Active Substance: ALLOPURINOL
     Indication: FLUID RETENTION
  5. METFORMIN +GLIPIZIDE [Concomitant]
     Indication: DIABETES MELLITUS
     Dosage: 1000 MG + 5 MG
  6. KLOR CON POTASSIUM [Concomitant]
     Indication: PRODUCT USED FOR UNKNOWN INDICATION
  7. TERAZOSIN [Concomitant]
     Active Substance: TERAZOSIN\TERAZOSIN HYDROCHLORIDE
     Indication: PROSTATIC DISORDER
  8. FUROSEMIDE. [Concomitant]
     Active Substance: FUROSEMIDE
     Indication: FLUID RETENTION
     Dates: start: 20160803
  9. SPIRONOLACTONE. [Concomitant]
     Active Substance: SPIRONOLACTONE
     Indication: FLUID RETENTION

REACTIONS (7)
  - Ammonia increased [Unknown]
  - Wrong technique in product usage process [Unknown]
  - Non-alcoholic steatohepatitis [Fatal]
  - Product difficult to swallow [Unknown]
  - Dementia [Unknown]
  - Drug ineffective [Unknown]
  - Asthenia [Unknown]

NARRATIVE: CASE EVENT DATE: 2016
